FAERS Safety Report 16525167 (Version 1)
Quarter: 2019Q3

REPORT INFORMATION
  Report Type: Spontaneous
  Country: JP (occurrence: JP)
  Receive Date: 20190702
  Receipt Date: 20190702
  Transmission Date: 20191004
  Serious: Yes (Other)
  Sender: FDA-Public Use
  Company Number: PHJP2019JP007741

PATIENT
  Age: 27 Year

DRUGS (1)
  1. EXJADE [Suspect]
     Active Substance: DEFERASIROX
     Indication: APLASTIC ANAEMIA
     Dosage: UNK
     Route: 048
     Dates: start: 2012, end: 201906

REACTIONS (4)
  - Optic atrophy [Not Recovered/Not Resolved]
  - Alveolar proteinosis [Not Recovered/Not Resolved]
  - Protein urine present [Not Recovered/Not Resolved]
  - Visual field defect [Unknown]

NARRATIVE: CASE EVENT DATE: 2017
